FAERS Safety Report 9998091 (Version 1)
Quarter: 2014Q1

REPORT INFORMATION
  Report Type: Report from Study
  Country: CA (occurrence: CA)
  Receive Date: 20140311
  Receipt Date: 20140311
  Transmission Date: 20141002
  Serious: Yes (Other)
  Sender: FDA-Public Use
  Company Number: CA-ABBVIE-14P-028-1209238-00

PATIENT
  Age: 39 Year
  Sex: Female

DRUGS (1)
  1. HUMIRA [Suspect]
     Indication: CROHN^S DISEASE
     Dosage: LATEST DOSE: 22-FEB-2014
     Route: 058
     Dates: start: 20110517

REACTIONS (2)
  - Nasal congestion [Not Recovered/Not Resolved]
  - Tooth abscess [Not Recovered/Not Resolved]
